FAERS Safety Report 6021564-0 (Version None)
Quarter: 2008Q4

REPORT INFORMATION
  Report Type: 
  Country: None (occurrence: None)
  Receive Date: 20081229
  Receipt Date: 20081218
  Transmission Date: 20090506
  Serious: Yes (Other)
  Sender: FDA-Public Use
  Company Number: DE-JNJFOC-20081203875

PATIENT
  Weight: 76 kg

DRUGS (6)
  1. REMICADE [Suspect]
     Dosage: OVER 2 HOURS
     Route: 042
  2. REMICADE [Suspect]
     Dosage: OVER 2 HOURS
     Route: 042
  3. REMICADE [Suspect]
     Route: 042
  4. REMICADE [Suspect]
     Indication: ANKYLOSING SPONDYLITIS
     Route: 042
  5. METHOTREXATE [Concomitant]
  6. UNKNOWN MEDICATION [Concomitant]

REACTIONS (4)
  - DYSPNOEA [None]
  - INFUSION RELATED REACTION [None]
  - PALPITATIONS [None]
  - SWELLING FACE [None]
